FAERS Safety Report 24790499 (Version 1)
Quarter: 2024Q4

REPORT INFORMATION
  Report Type: Spontaneous
  Country: DK (occurrence: DK)
  Receive Date: 20241230
  Receipt Date: 20241230
  Transmission Date: 20250115
  Serious: Yes (Hospitalization)
  Sender: TEVA
  Company Number: None

PATIENT
  Age: 59 Year
  Sex: Female
  Weight: 63 kg

DRUGS (4)
  1. PREDNISOLONE [Suspect]
     Active Substance: PREDNISOLONE
     Indication: Nausea
     Dosage: THE PATIENT HAS BEEN TAKING PREDNISOLONE 25MG ONCE A DAY SINCE AUG2024.?THE WEEK BEFORE HOSPITALI...
     Route: 048
     Dates: start: 202408
  2. ONDANSETRON [Concomitant]
     Active Substance: ONDANSETRON
     Indication: Adverse drug reaction
     Dosage: START DATE UNKNOWN BUT AT LEAST SINCE 02AUG2024
     Route: 048
  3. PANTOPRAZOLE [Concomitant]
     Active Substance: PANTOPRAZOLE
     Indication: Gastric ulcer
     Route: 065
     Dates: start: 20240703
  4. TEMOZOLOMIDE [Concomitant]
     Active Substance: TEMOZOLOMIDE
     Indication: Neoplasm malignant
     Dosage: START DATE UNKNOWN BUT AT LEAST SINCE 01AUG2024
     Route: 048

REACTIONS (1)
  - Hyperglycaemia [Recovered/Resolved]

NARRATIVE: CASE EVENT DATE: 20241010
